FAERS Safety Report 8175065-4 (Version None)
Quarter: 2012Q1

REPORT INFORMATION
  Report Type: 
  Country: None (occurrence: None)
  Receive Date: 20120227
  Receipt Date: 20120220
  Transmission Date: 20120608
  Serious: Yes (Death)
  Sender: FDA-Public Use
  Company Number: MY-1190675

PATIENT
  Age: 28 Day
  Sex: Female

DRUGS (2)
  1. MYDFRIN 2.5 % OPHTHALMIC SOLUTION (MYDFRIN) [Suspect]
     Dosage: OPHTHALMIC
     Route: 047
  2. MYDRIACYL [Suspect]
     Dosage: OPHTHALMIC
     Route: 047

REACTIONS (1)
  - NECROTISING COLITIS [None]
